FAERS Safety Report 25773595 (Version 1)
Quarter: 2025Q3

REPORT INFORMATION
  Report Type: Report from Study
  Country: IL (occurrence: IL)
  Receive Date: 20250908
  Receipt Date: 20250908
  Transmission Date: 20251020
  Serious: Yes (Other)
  Sender: CHEPLAPHARM
  Company Number: IL-CHEPLA-2025010477

PATIENT
  Age: 29 Week
  Sex: Female
  Weight: 0.74 kg

DRUGS (1)
  1. GANCICLOVIR [Suspect]
     Active Substance: GANCICLOVIR
     Indication: Congenital cytomegalovirus infection
     Route: 042

REACTIONS (4)
  - Ascites [Recovering/Resolving]
  - Neutropenia [Recovered/Resolved]
  - Condition aggravated [Recovering/Resolving]
  - Off label use [Recovered/Resolved]
